FAERS Safety Report 7929807-0 (Version None)
Quarter: 2011Q4

REPORT INFORMATION
  Report Type: 
  Country: None (occurrence: None)
  Receive Date: 20111121
  Receipt Date: 20111117
  Transmission Date: 20120403
  Serious: Yes (Hospitalization)
  Sender: FDA-Public Use
  Company Number: US-BRISTOL-MYERS SQUIBB COMPANY-16211096

PATIENT
  Age: 48 Year
  Sex: Female
  Weight: 77 kg

DRUGS (3)
  1. FLUOROURACIL [Suspect]
     Indication: COLORECTAL CANCER
     Dosage: LAST DOSE: DAY 29 ON 18OCT11 NO OF DOSE:11.INTR ON 01NOV11. RESD ON 08NOV11,CYC3 D43
     Dates: start: 20110419
  2. CETUXIMAB [Suspect]
     Indication: COLORECTAL CANCER
     Dosage: LAST DOSE: DAY 29 ON 18OCT11 NO OF DOSE:10.INTR ON 01NOV11. RESD ON 08NOV11,CYC3 D43,800MG/M2
     Dates: start: 20110419
  3. OXALIPLATIN [Suspect]
     Indication: COLORECTAL CANCER
     Dosage: LAST DOSE: DAY 29 ON 18OCT11 NO OF DOSE:11.INTR ON 01NOV11. RESD ON 08NOV11,CYC3 D43
     Dates: start: 20110419

REACTIONS (2)
  - PANCYTOPENIA [None]
  - HAEMORRHAGE [None]
